FAERS Safety Report 7282860-2 (Version None)
Quarter: 2011Q1

REPORT INFORMATION
  Report Type: 
  Country: None (occurrence: None)
  Receive Date: 20110128
  Receipt Date: 20110113
  Transmission Date: 20110831
  Serious: Yes (Death)
  Sender: FDA-Public Use
  Company Number: OPIR20100042

PATIENT
  Age: 45 Year
  Sex: Male
  Weight: 113.8529 kg

DRUGS (2)
  1. OXYCODONE (OXYCODONE) (TABLETS) [Suspect]
     Indication: PRODUCT USED FOR UNKNOWN INDICATION
  2. OPANA [Suspect]
     Indication: PRODUCT USED FOR UNKNOWN INDICATION
     Dosage: ORAL
     Route: 048

REACTIONS (2)
  - TOXICITY TO VARIOUS AGENTS [None]
  - ACCIDENTAL DEATH [None]
